FAERS Safety Report 5941885-7 (Version None)
Quarter: 2008Q4

REPORT INFORMATION
  Report Type: 
  Country: None (occurrence: None)
  Receive Date: 20081104
  Receipt Date: 20081104
  Transmission Date: 20090506
  Serious: Yes (Life-Threatening, Other)
  Sender: FDA-Public Use
  Company Number: None

PATIENT
  Sex: Male
  Weight: 78.4723 kg

DRUGS (2)
  1. CARVEDILOL [Suspect]
     Indication: CARDIAC FAILURE CONGESTIVE
     Dosage: 12.5 MG BID PO
     Route: 048
     Dates: start: 20070401, end: 20080218
  2. CARVEDILOL [Suspect]
     Indication: CARDIOMYOPATHY
     Dosage: 12.5 MG BID PO
     Route: 048
     Dates: start: 20070401, end: 20080218

REACTIONS (2)
  - BLOOD GLUCOSE FLUCTUATION [None]
  - PRODUCT QUALITY ISSUE [None]
